FAERS Safety Report 18178079 (Version 1)
Quarter: 2020Q3

REPORT INFORMATION
  Report Type: Spontaneous
  Country: JP (occurrence: JP)
  Receive Date: 20200821
  Receipt Date: 20200821
  Transmission Date: 20201103
  Serious: Yes (Hospitalization, Other)
  Sender: FDA-Public Use
  Company Number: JP-MICRO LABS LIMITED-ML2020-02433

PATIENT
  Age: 18 Year
  Sex: Female

DRUGS (5)
  1. VILDAGLIPTIN [Suspect]
     Active Substance: VILDAGLIPTIN
     Dosage: 26 TABLETS OF VILDAGLIPTIN 50MG (1,300MG IN TOTAL)
  2. DAPAGLIFLOZIN. [Suspect]
     Active Substance: DAPAGLIFLOZIN
     Dosage: 5 TABLETS OF DAPAGLIFLOZIN?5MG
  3. GLIMEPIRIDE. [Suspect]
     Active Substance: GLIMEPIRIDE
     Dosage: 7 TABLETS OF GLIMEPIRIDE?1 MG
  4. ATORVASTATIN [Suspect]
     Active Substance: ATORVASTATIN
     Dosage: 1 TABLET OF ATORVASTATIN?10MG
  5. METFORMIN [Suspect]
     Active Substance: METFORMIN HYDROCHLORIDE
     Dosage: 64 TABLETS OF METFORMIN 250MG (16,000 MG IN TOTAL)

REACTIONS (3)
  - Intentional overdose [Unknown]
  - Drug abuse [Unknown]
  - Loss of consciousness [Recovered/Resolved]
